FAERS Safety Report 12586816 (Version 1)
Quarter: 2016Q3

REPORT INFORMATION
  Report Type: Spontaneous
  Country: US (occurrence: US)
  Receive Date: 20160725
  Receipt Date: 20160725
  Transmission Date: 20161109
  Serious: Yes (Death)
  Sender: FDA-Public Use
  Company Number: US-PFIZER INC-2016352311

PATIENT
  Age: 42 Year
  Sex: Male
  Weight: 58 kg

DRUGS (1)
  1. SUTENT [Suspect]
     Active Substance: SUNITINIB MALATE
     Indication: RENAL CANCER METASTATIC
     Dates: start: 20150923

REACTIONS (2)
  - Disease progression [Fatal]
  - Renal cancer metastatic [Fatal]
